FAERS Safety Report 16393883 (Version 2)
Quarter: 2019Q2

REPORT INFORMATION
  Report Type: Spontaneous
  Country: US (occurrence: US)
  Receive Date: 20190605
  Receipt Date: 20190619
  Transmission Date: 20190711
  Serious: No
  Sender: FDA-Public Use
  Company Number: US-ALLERGAN-1831759US

PATIENT
  Sex: Female

DRUGS (1)
  1. TAYTULLA [Suspect]
     Active Substance: ETHINYL ESTRADIOL\NORETHINDRONE ACETATE
     Indication: CONTRACEPTION
     Dosage: UNK
     Route: 065
     Dates: end: 2018

REACTIONS (7)
  - Malaise [Unknown]
  - Recalled product administered [Unknown]
  - Abnormal behaviour [Unknown]
  - Weight decreased [Unknown]
  - Noctiphobia [Unknown]
  - Pigmentation disorder [Unknown]
  - Acne [Unknown]

NARRATIVE: CASE EVENT DATE: 201802
